FAERS Safety Report 5960889-1 (Version None)
Quarter: 2008Q4

REPORT INFORMATION
  Report Type: 
  Country: None (occurrence: None)
  Receive Date: 20081118
  Receipt Date: 20081107
  Transmission Date: 20090506
  Serious: Yes (Hospitalization)
  Sender: FDA-Public Use
  Company Number: GXKR2008IT10678

PATIENT
  Age: 22 Year
  Sex: Female

DRUGS (1)
  1. METHIMAZOLE [Suspect]
     Indication: BASEDOW'S DISEASE
     Dosage: 30 MG, DAILY, UNKNOWN
     Dates: start: 20021201

REACTIONS (7)
  - ACTIVATED PARTIAL THROMBOPLASTIN TIME PROLONGED [None]
  - ANTIPHOSPHOLIPID ANTIBODIES [None]
  - BLOOD FIBRINOGEN INCREASED [None]
  - HEADACHE [None]
  - HYPERREFLEXIA [None]
  - PARAESTHESIA [None]
  - VASCULITIS CEREBRAL [None]
